FAERS Safety Report 10210882 (Version 2)
Quarter: 2014Q2

REPORT INFORMATION
  Report Type: Other
  Country: US (occurrence: US)
  Receive Date: 20140602
  Receipt Date: 20140602
  Transmission Date: 20141212
  Serious: Yes (Hospitalization, Other)
  Sender: FDA-Public Use
  Company Number: US-ACORDA-ACO_103508_2014

PATIENT
  Sex: Male

DRUGS (1)
  1. AMPYRA [Suspect]
     Indication: MULTIPLE SCLEROSIS
     Dosage: 10 MG, Q 12 HRS
     Route: 065
     Dates: start: 20140407

REACTIONS (6)
  - Pulmonary embolism [Unknown]
  - Thrombosis [Unknown]
  - Constipation [Unknown]
  - Upper respiratory tract infection [Recovering/Resolving]
  - Haemoptysis [Unknown]
  - Urinary tract infection [Recovering/Resolving]
